FAERS Safety Report 12568189 (Version 3)
Quarter: 2017Q3

REPORT INFORMATION
  Report Type: Spontaneous
  Country: US (occurrence: US)
  Receive Date: 20160718
  Receipt Date: 20170724
  Transmission Date: 20171127
  Serious: Yes (Hospitalization)
  Sender: FDA-Public Use
  Company Number: US-ACTELION-A-NJ2016-139466

PATIENT
  Age: 59 Year
  Sex: Female

DRUGS (2)
  1. OPSUMIT [Suspect]
     Active Substance: MACITENTAN
     Indication: PULMONARY HYPERTENSION
     Dosage: 10 MG, QD
     Route: 048
     Dates: start: 20160520
  2. REVATIO [Concomitant]
     Active Substance: SILDENAFIL CITRATE

REACTIONS (11)
  - Bowel movement irregularity [Unknown]
  - Nausea [Unknown]
  - Drug dose omission [Unknown]
  - Intestinal obstruction [Unknown]
  - Vomiting [Unknown]
  - Fatigue [Unknown]
  - Condition aggravated [Unknown]
  - Abdominal distension [Unknown]
  - Asthenia [Unknown]
  - Abdominal discomfort [Unknown]
  - Tachycardia [Unknown]

NARRATIVE: CASE EVENT DATE: 20170711
